FAERS Safety Report 24221284 (Version 2)
Quarter: 2024Q4

REPORT INFORMATION
  Report Type: Spontaneous
  Country: FR (occurrence: FR)
  Receive Date: 20240819
  Receipt Date: 20241216
  Transmission Date: 20250115
  Serious: Yes (Hospitalization)
  Sender: NOVO NORDISK
  Company Number: FR-NOVOPROD-1266440

PATIENT
  Age: 54 Year
  Sex: Male

DRUGS (2)
  1. NOVORAPID [Suspect]
     Active Substance: INSULIN ASPART
     Indication: Product used for unknown indication
     Dosage: UNK
  2. DAPAGLIFLOZIN [Concomitant]
     Active Substance: DAPAGLIFLOZIN
     Indication: Type 1 diabetes mellitus
     Dosage: 1 TAB PER DAY

REACTIONS (3)
  - Suicide attempt [Recovered/Resolved]
  - Wrong technique in product usage process [Unknown]
  - Product knowledge deficit [Unknown]
